FAERS Safety Report 10757273 (Version 1)
Quarter: 2015Q1

REPORT INFORMATION
  Report Type: Spontaneous
  Country: CA (occurrence: None)
  Receive Date: 20150130
  Receipt Date: 20150130
  Transmission Date: 20150721
  Serious: Yes (Hospitalization, Disabling, Other)
  Sender: FDA-Public Use
  Company Number: FK201500391

PATIENT
  Sex: Female
  Weight: 64 kg

DRUGS (1)
  1. CEFTRIAXON (MANUFACTURER UNKNOWN) (CEFTRIAXON-DINATRIUM) (CEFTRIAXON-DINATRIUM) [Suspect]
     Active Substance: CEFTRIAXONE
     Indication: INFECTION
     Route: 042

REACTIONS (7)
  - Hypoaesthesia [None]
  - Skin exfoliation [None]
  - Erythema [None]
  - Pain in extremity [None]
  - Rash [None]
  - Blister [None]
  - Sensory loss [None]
